FAERS Safety Report 8564556-X (Version None)
Quarter: 2012Q3

REPORT INFORMATION
  Report Type: 
  Country: None (occurrence: None)
  Receive Date: 20120727
  Receipt Date: 20120727
  Transmission Date: 20120928
  Serious: Yes (Life-Threatening, Hospitalization)
  Sender: FDA-Public Use
  Company Number: None

PATIENT
  Age: 29 Year
  Sex: Female

DRUGS (2)
  1. SUBUTEX [Suspect]
     Indication: DEPENDENCE
     Dosage: 16MG QD, SL
     Route: 060
     Dates: start: 20120103, end: 20120107
  2. SUBUTEX [Suspect]
     Indication: PREGNANCY
     Dosage: 16MG QD, SL
     Route: 060
     Dates: start: 20120103, end: 20120107

REACTIONS (7)
  - VOMITING [None]
  - DRUG WITHDRAWAL SYNDROME [None]
  - NAUSEA [None]
  - UTERINE SPASM [None]
  - MALAISE [None]
  - FOETAL EXPOSURE DURING PREGNANCY [None]
  - MATERNAL EXPOSURE DURING PREGNANCY [None]
